FAERS Safety Report 19526669 (Version 1)
Quarter: 2021Q3

REPORT INFORMATION
  Report Type: Report from Study
  Country: JP (occurrence: JP)
  Receive Date: 20210713
  Receipt Date: 20210713
  Transmission Date: 20211014
  Serious: Yes (Hospitalization, Disabling)
  Sender: FDA-Public Use
  Company Number: JP-ASTRAZENECA-2020SF48273

PATIENT
  Age: 68 Year
  Sex: Male
  Weight: 75 kg

DRUGS (15)
  1. AMLODIPINE [Concomitant]
     Active Substance: AMLODIPINE BESYLATE
     Dosage: 10 MG NUMBER OF SEPARATE DOSAGES UNKNOWN
     Route: 048
  2. VALSARTAN. [Concomitant]
     Active Substance: VALSARTAN
     Dosage: 80 MG NUMBER OF SEPARATE DOSAGES UNKNOWN
     Route: 048
  3. BRILINTA [Suspect]
     Active Substance: TICAGRELOR
     Indication: MYOCARDIAL INFARCTION
     Route: 048
     Dates: start: 20190306
  4. P?TOL [Concomitant]
     Dosage: 250 MG NUMBER OF SEPARATE DOSAGES UNKNOWN
     Route: 048
  5. TRULICITY [Concomitant]
     Active Substance: DULAGLUTIDE
     Dosage: 0.75 MG NUMBER OF SEPARATE DOSAGES UNKNOWN
     Route: 058
  6. FOSRENOL [Concomitant]
     Active Substance: LANTHANUM CARBONATE
     Dosage: 500 MG NUMBER OF SEPARATE DOSAGES UNKNOWN
     Route: 048
  7. RENAGEL [Concomitant]
     Active Substance: SEVELAMER HYDROCHLORIDE
     Dosage: 1000 MG NUMBER OF SEPARATE DOSAGES UNKNOWN
     Route: 048
  8. ORKEDIA [Concomitant]
     Active Substance: EVOCALCET
     Dosage: 2 MG NUMBER OF SEPARATE DOSAGES UNKNOWN
     Route: 048
  9. CRESTOR OD [Concomitant]
     Active Substance: ROSUVASTATIN CALCIUM
     Dosage: 2.5 MG
     Route: 048
  10. BISOPROLOL FUMARATE. [Concomitant]
     Active Substance: BISOPROLOL FUMARATE
     Dosage: 5 MG NUMBER OF SEPARATE DOSAGES UNKNOWN
     Route: 048
  11. TRESIBA [Concomitant]
     Active Substance: INSULIN DEGLUDEC
     Dosage: 13 IU NUMBER OF SEPARATE DOSAGES UNKNOWN
     Route: 065
  12. ASPIRIN. [Concomitant]
     Active Substance: ASPIRIN
     Dosage: 100 MG NUMBER OF SEPARATE DOSAGES UNKNOWN
     Route: 065
  13. KAYEXALATE [Concomitant]
     Active Substance: SODIUM POLYSTYRENE SULFONATE
     Dosage: 30 G NUMBER OF SEPARATE DOSAGES UNKNOWN
     Route: 048
  14. TAKECAB [Concomitant]
     Active Substance: VONOPRAZAN FUMARATE
     Dosage: 10 MG NUMBER OF SEPARATE DOSAGES UNKNOWN
     Route: 048
  15. NOVORAPID [Concomitant]
     Active Substance: INSULIN ASPART
     Route: 065
     Dates: end: 20190613

REACTIONS (1)
  - Myocardial infarction [Recovering/Resolving]

NARRATIVE: CASE EVENT DATE: 20191001
